FAERS Safety Report 20777834 (Version 1)
Quarter: 2022Q2

REPORT INFORMATION
  Report Type: Spontaneous
  Country: GB (occurrence: GB)
  Receive Date: 20220503
  Receipt Date: 20220503
  Transmission Date: 20220721
  Serious: Yes (Other)
  Sender: FDA-Public Use
  Company Number: None

PATIENT
  Age: 85 Year
  Sex: Male
  Weight: 88 kg

DRUGS (7)
  1. BARICITINIB [Suspect]
     Active Substance: BARICITINIB
     Indication: Eczema
     Dosage: UNK UNK, UNKNOWN
     Route: 065
     Dates: start: 20220414
  2. CALCIUM CARBONATE [Concomitant]
     Active Substance: CALCIUM CARBONATE
     Dosage: 1 DOSAGE FORM, BID
     Route: 065
     Dates: start: 20220127
  3. ALENDRONIC ACID [Concomitant]
     Active Substance: ALENDRONIC ACID
     Dosage: 1 DOSAGE FORM, WEEKLY (1/W)
     Route: 065
     Dates: start: 20220127
  4. DERMOL [BENZALKONIUM CHLORIDE;CHLORHEXIDINE H [Concomitant]
     Dosage: UNK, UNKNOWN
     Route: 065
     Dates: start: 20210111
  5. ISOPROPYL MYRISTATE\MINERAL OIL [Concomitant]
     Active Substance: ISOPROPYL MYRISTATE\MINERAL OIL
     Dosage: UNK, PRN
     Route: 065
     Dates: start: 20210111
  6. DOXYCYCLINE [Concomitant]
     Active Substance: DOXYCYCLINE
     Dosage: 1 DOSAGE FORM, DAILY
     Route: 065
     Dates: start: 20220404, end: 20220411
  7. PREDNISOLONE [Concomitant]
     Active Substance: PREDNISOLONE
     Dosage: 6 DOSAGE FORM, DAILY
     Route: 065
     Dates: start: 20220321, end: 20220328

REACTIONS (2)
  - Cardiac failure [Unknown]
  - Peripheral swelling [Unknown]

NARRATIVE: CASE EVENT DATE: 20220414
